FAERS Safety Report 10308983 (Version 1)
Quarter: 2014Q3

REPORT INFORMATION
  Report Type: Spontaneous
  Country: IT (occurrence: IT)
  Receive Date: 20140716
  Receipt Date: 20140716
  Transmission Date: 20150326
  Serious: Yes (Hospitalization)
  Sender: FDA-Public Use
  Company Number: IT-BAYER-2014-103123

PATIENT
  Age: 72 Year
  Sex: Male

DRUGS (5)
  1. NORVASC [Suspect]
     Active Substance: AMLODIPINE BESYLATE
     Indication: HYPERTENSION
     Dosage: DAILY DOSE 10 MG
  2. PARIET [Suspect]
     Active Substance: RABEPRAZOLE SODIUM
     Indication: GASTRITIS
     Dosage: DAILY DOSE 20 MG
  3. DILATREND [Concomitant]
     Active Substance: CARVEDILOL
     Indication: ESSENTIAL HYPERTENSION
     Dosage: DAILY DOSE 6.25 MG
     Route: 048
  4. CARDIOASPIRIN [Suspect]
     Active Substance: ASPIRIN
     Indication: ESSENTIAL HYPERTENSION
     Dosage: DAILY DOSE 100 MG
  5. OLMETEC [Concomitant]
     Active Substance: OLMESARTAN MEDOXOMIL
     Indication: ESSENTIAL HYPERTENSION
     Dosage: DAILY DOSE 20 MG
     Route: 048

REACTIONS (4)
  - Drug interaction [None]
  - Abdominal pain [Recovering/Resolving]
  - Pancreatitis acute [Recovering/Resolving]
  - Haematemesis [Recovering/Resolving]

NARRATIVE: CASE EVENT DATE: 20140623
